FAERS Safety Report 21265918 (Version 1)
Quarter: 2022Q3

REPORT INFORMATION
  Report Type: Report from Study
  Country: US (occurrence: US)
  Receive Date: 20220829
  Receipt Date: 20220829
  Transmission Date: 20221026
  Serious: Yes (Hospitalization)
  Sender: FDA-Public Use
  Company Number: US-ARGENX-2022-ARGX-US000586

PATIENT

DRUGS (1)
  1. VYVGART [Suspect]
     Active Substance: EFGARTIGIMOD ALFA-FCAB
     Indication: Myasthenia gravis
     Dosage: 1200 MG, 1/WEEK
     Dates: start: 20220501

REACTIONS (4)
  - Fatigue [Unknown]
  - Infection [Unknown]
  - Therapeutic product effect incomplete [Unknown]
  - Vertigo [Unknown]

NARRATIVE: CASE EVENT DATE: 20220405
